FAERS Safety Report 4543907-7 (Version None)
Quarter: 2005Q1

REPORT INFORMATION
  Report Type: 
  Country: None (occurrence: None)
  Receive Date: 20050103
  Receipt Date: 20041117
  Transmission Date: 20050727
  Serious: Yes (Hospitalization)
  Sender: FDA-Public Use
  Company Number: PHHO2004PH13333

PATIENT
  Age: 44 Year
  Sex: Male
  Weight: 56 kg

DRUGS (2)
  1. RIMSTAR(4-DT37080+TAB) TABLET [Suspect]
     Indication: PULMONARY TUBERCULOSIS
     Dosage: 4 TABLETS, ORAL
     Route: 048
     Dates: start: 20030929, end: 20040101
  2. RIMACTAZID (NGX) (RIFAMPICIN, ISONIAZID, PYRAZINAMIDE) TABLET [Suspect]
     Indication: PULMONARY TUBERCULOSIS
     Dosage: 3 TABLETS, ORAL
     Route: 048
     Dates: start: 20030101, end: 20040405

REACTIONS (4)
  - DISEASE PROGRESSION [None]
  - EMPHYSEMA [None]
  - PLEURAL EFFUSION [None]
  - PLEURAL FIBROSIS [None]
